FAERS Safety Report 11009736 (Version 1)
Quarter: 2015Q2

REPORT INFORMATION
  Report Type: Spontaneous
  Country: US (occurrence: US)
  Receive Date: 20150410
  Receipt Date: 20150410
  Transmission Date: 20150821
  Serious: No
  Sender: FDA-Public Use
  Company Number: US-TEVA-551062USA

PATIENT
  Age: 65 Year
  Sex: Female
  Weight: 47.67 kg

DRUGS (5)
  1. AVONEX [Concomitant]
     Active Substance: INTERFERON BETA-1A
     Indication: INFLAMMATION
  2. BACLOFEN. [Concomitant]
     Active Substance: BACLOFEN
  3. PROVIGIL [Suspect]
     Active Substance: MODAFINIL
     Indication: MULTIPLE SCLEROSIS
     Dosage: 400 MILLIGRAM DAILY;
     Route: 065
     Dates: start: 201303
  4. AMPYRA [Concomitant]
     Active Substance: DALFAMPRIDINE
  5. BUPROPION [Concomitant]
     Active Substance: BUPROPION
     Indication: ANXIETY

REACTIONS (4)
  - Somnolence [Unknown]
  - Fatigue [Not Recovered/Not Resolved]
  - Product substitution issue [Not Recovered/Not Resolved]
  - Product use issue [Unknown]

NARRATIVE: CASE EVENT DATE: 201303
